FAERS Safety Report 17770327 (Version 2)
Quarter: 2022Q4

REPORT INFORMATION
  Report Type: Spontaneous
  Country: DE (occurrence: DE)
  Receive Date: 20200512
  Receipt Date: 20221202
  Transmission Date: 20230113
  Serious: Yes (Hospitalization)
  Sender: FDA-Public Use
  Company Number: None

PATIENT
  Age: 89 Year
  Sex: Female
  Weight: 53 kg

DRUGS (14)
  1. FUROSEMIDE [Suspect]
     Active Substance: FUROSEMIDE
     Indication: Product used for unknown indication
     Dosage: 40 MG, 1-1-0-0
  2. XIPAMIDE [Suspect]
     Active Substance: XIPAMIDE
     Indication: Product used for unknown indication
     Dosage: 20 MG, 0-1-0-0
  3. CANDESARTAN [Concomitant]
     Active Substance: CANDESARTAN
     Dosage: 16 MG, 1-0-0.5-0
  4. CLONIDINE [Concomitant]
     Active Substance: CLONIDINE
     Dosage: 150 UG, 1-0-1-0
  5. ALBUTEROL [Concomitant]
     Active Substance: ALBUTEROL
     Dosage: 5-5-5-0,  DROPS
     Route: 055
  6. Eisen [Concomitant]
     Dosage: 100 MG, 1-0-0-0
  7. PANCRELIPASE [Concomitant]
     Active Substance: PANCRELIPASE
     Dosage: 25000 IE, 1-1-1-0
  8. IPRATROPIUM BROMIDE [Concomitant]
     Active Substance: IPRATROPIUM BROMIDE
     Dosage: 20-20-20-0,  METERED DOSE INHALER, INHALER
     Route: 055
  9. HUMALOG [Concomitant]
     Active Substance: INSULIN LISPRO
     Dosage: ACCORDING TO THE SCHEME
  10. DIHYDRALAZINE SULFATE [Concomitant]
     Active Substance: DIHYDRALAZINE SULFATE
     Dosage: 25 MG, 1-0-1-0
  11. ASPIRIN [Concomitant]
     Active Substance: ASPIRIN
     Dosage: 100 MG, 0-1-0-0
  12. AMLODIPINE BESYLATE [Concomitant]
     Active Substance: AMLODIPINE BESYLATE
     Dosage: 5 MG, 1-0-1-0
  13. PREGABALIN [Concomitant]
     Active Substance: PREGABALIN
     Dosage: 75 MG, 1-0-0-0
  14. METOPROLOL [Concomitant]
     Active Substance: METOPROLOL
     Dosage: 95 MG, 1-0-1-0

REACTIONS (3)
  - Somnolence [Unknown]
  - General physical health deterioration [Unknown]
  - Memory impairment [Unknown]
